FAERS Safety Report 5383615-6 (Version None)
Quarter: 2007Q3

REPORT INFORMATION
  Report Type: 
  Country: None (occurrence: None)
  Receive Date: 20070706
  Receipt Date: 20070622
  Transmission Date: 20080115
  Serious: Yes (Other)
  Sender: FDA-Public Use
  Company Number: 02100-EUR-07-0099

PATIENT
  Age: 78 Year
  Sex: Male

DRUGS (2)
  1. CILOSTAZOL [Suspect]
     Indication: INTERMITTENT CLAUDICATION
     Dosage: 200 MG ORAL
     Route: 048
     Dates: start: 20070613, end: 20070621
  2. ASPIRIN [Suspect]
     Dosage: ORAL
     Route: 048

REACTIONS (4)
  - GASTRIC ULCER [None]
  - MELAENA [None]
  - NAUSEA [None]
  - VOMITING [None]
